FAERS Safety Report 4372233-4 (Version None)
Quarter: 2004Q2

REPORT INFORMATION
  Report Type: 
  Country: None (occurrence: None)
  Receive Date: 20040602
  Receipt Date: 20040514
  Transmission Date: 20050107
  Serious: Yes (Death)
  Sender: FDA-Public Use
  Company Number: DSA_24445_2004

PATIENT
  Age: 59 Year
  Sex: Female

DRUGS (10)
  1. DILTIAZEM [Suspect]
     Indication: ANGINA PECTORIS
     Dosage: 120 MG Q DAY
  2. ATORVASTATIN CALCIUM [Suspect]
     Dosage: 40 MG Q DAY
  3. GLYCERYL TRINITRATE [Concomitant]
  4. ISOSORBIDE MONONITRATE [Concomitant]
  5. INSULIN [Concomitant]
  6. METOCLOPRAMIDE [Concomitant]
  7. VITAMIN D [Concomitant]
  8. OMEPRAZOLE [Concomitant]
  9. CALCIUM [Concomitant]
  10. EPOGEN [Concomitant]

REACTIONS (4)
  - CARDIAC ARREST [None]
  - DRUG INTERACTION [None]
  - MYOSITIS [None]
  - PERIPHERAL ISCHAEMIA [None]
